FAERS Safety Report 10677472 (Version 1)
Quarter: 2014Q4

REPORT INFORMATION
  Report Type: Spontaneous
  Country: CH (occurrence: CH)
  Receive Date: 20141227
  Receipt Date: 20141227
  Transmission Date: 20150529
  Serious: Yes (Hospitalization)
  Sender: FDA-Public Use
  Company Number: CH-JNJFOC-20141211726

PATIENT
  Sex: Male
  Weight: 20 kg

DRUGS (3)
  1. IMODIUM [Suspect]
     Active Substance: LOPERAMIDE HYDROCHLORIDE
     Route: 048
  2. PASPERTIN [Concomitant]
     Active Substance: METOCLOPRAMIDE HYDROCHLORIDE
     Indication: VOMITING
     Route: 048
     Dates: start: 20140908, end: 20140908
  3. IMODIUM [Suspect]
     Active Substance: LOPERAMIDE HYDROCHLORIDE
     Indication: DIARRHOEA
     Route: 048
     Dates: start: 20140908, end: 20140909

REACTIONS (4)
  - Photophobia [Recovered/Resolved]
  - Somnolence [Recovered/Resolved]
  - Hallucination [Recovered/Resolved]
  - Hyperacusis [Recovered/Resolved]

NARRATIVE: CASE EVENT DATE: 20140908
